FAERS Safety Report 5759148-1 (Version None)
Quarter: 2008Q2

REPORT INFORMATION
  Report Type: 
  Country: None (occurrence: None)
  Receive Date: 20080604
  Receipt Date: 20080602
  Transmission Date: 20081010
  Serious: Yes (Death)
  Sender: FDA-Public Use
  Company Number: JP-BOEHRINGER INGELHEIM GMBH, GERMANY-2008-BP-08340NB

PATIENT
  Sex: Female

DRUGS (11)
  1. PRAMIPEXOLE DIHYDROCHLORIDE [Suspect]
     Indication: PARKINSON'S DISEASE
     Route: 048
     Dates: start: 20050513, end: 20080318
  2. ACTOS [Concomitant]
     Indication: DIABETES MELLITUS
     Route: 048
     Dates: start: 20001222, end: 20080318
  3. MEVALOTIN [Concomitant]
     Indication: HYPERLIPIDAEMIA
     Route: 048
     Dates: start: 20020309, end: 20080318
  4. LONGES [Concomitant]
     Indication: HYPERTENSION
     Route: 048
     Dates: start: 20020322, end: 20080318
  5. ATELEC [Concomitant]
     Indication: HYPERTENSION
     Route: 048
     Dates: start: 20050128, end: 20080318
  6. MYONAL [Concomitant]
     Indication: TENSION HEADACHE
     Route: 048
     Dates: start: 20050603, end: 20080318
  7. MOHRUS TAPE L [Concomitant]
     Indication: ARTHRALGIA
     Route: 062
     Dates: start: 20050602, end: 20080318
  8. DEPAS [Concomitant]
     Indication: TENSION HEADACHE
     Route: 048
     Dates: start: 20050729, end: 20080318
  9. MENESIT [Concomitant]
     Indication: PARKINSON'S DISEASE
     Route: 048
     Dates: start: 20050708, end: 20080318
  10. VOLTAREN [Concomitant]
     Indication: ARTHRALGIA
     Route: 054
     Dates: start: 20051222, end: 20080318
  11. JUVELA N (TOCOPHEROL NICOTINATE) [Concomitant]
     Indication: VITH NERVE PARALYSIS
     Route: 048
     Dates: start: 20080304, end: 20080318

REACTIONS (8)
  - ANAEMIA [None]
  - C-REACTIVE PROTEIN INCREASED [None]
  - DIABETIC HYPEROSMOLAR COMA [None]
  - DIPLOPIA [None]
  - MYOCARDIAL INFARCTION [None]
  - PYREXIA [None]
  - SOMNOLENCE [None]
  - WHITE BLOOD CELL COUNT INCREASED [None]
